FAERS Safety Report 9693241 (Version 6)
Quarter: 2014Q3

REPORT INFORMATION
  Report Type: Spontaneous
  Country: US (occurrence: US)
  Receive Date: 20131118
  Receipt Date: 20140728
  Transmission Date: 20150326
  Serious: Yes (Hospitalization, Disabling, Other)
  Sender: FDA-Public Use
  Company Number: US-009507513-1205USA01099

PATIENT
  Sex: Female
  Weight: 78.5 kg

DRUGS (5)
  1. FOSAMAX [Suspect]
     Active Substance: ALENDRONATE SODIUM
     Route: 048
  2. FOSAMAX [Suspect]
     Active Substance: ALENDRONATE SODIUM
     Dosage: 70 MG, UNK
     Route: 048
     Dates: start: 200106, end: 200609
  3. FOSAMAX PLUS D [Suspect]
     Active Substance: ALENDRONATE SODIUM\CHOLECALCIFEROL
     Dosage: UNK
     Route: 048
  4. FOSAMAX [Suspect]
     Active Substance: ALENDRONATE SODIUM
     Indication: OSTEOPOROSIS PROPHYLAXIS
     Dosage: UNK
     Route: 048
     Dates: start: 2000, end: 200609
  5. HORMONES (UNSPECIFIED) [Concomitant]
     Active Substance: UNSPECIFIED INGREDIENT
     Dosage: UNK
     Dates: start: 1990, end: 2005

REACTIONS (52)
  - Tibia fracture [Recovered/Resolved]
  - Hypothyroidism [Unknown]
  - Interstitial lung disease [Unknown]
  - Vascular calcification [Unknown]
  - Exostosis [Unknown]
  - Gastric disorder [Unknown]
  - Haemorrhagic anaemia [Unknown]
  - Arthralgia [Unknown]
  - Intramedullary rod insertion [Unknown]
  - Essential hypertension [Not Recovered/Not Resolved]
  - Bunion operation [Unknown]
  - Spinal osteoarthritis [Unknown]
  - Intervertebral disc degeneration [Unknown]
  - Rotator cuff syndrome [Not Recovered/Not Resolved]
  - Drug ineffective [Unknown]
  - Stress fracture [Not Recovered/Not Resolved]
  - Adverse event [Unknown]
  - Spinal column stenosis [Unknown]
  - Nasal septal operation [Unknown]
  - Fibula fracture [Recovered/Resolved]
  - Tracheal mass [Unknown]
  - Femur fracture [Unknown]
  - Intramedullary rod insertion [Unknown]
  - Depression [Not Recovered/Not Resolved]
  - Hypercholesterolaemia [Unknown]
  - Restless legs syndrome [Unknown]
  - Bone disorder [Unknown]
  - Osteoporosis [Unknown]
  - Bacterial test positive [Unknown]
  - Osteomalacia [Unknown]
  - Pneumonia [Recovered/Resolved]
  - Tracheal deviation [Unknown]
  - Protein urine [Unknown]
  - Lymphadenopathy [Unknown]
  - Anxiety [Not Recovered/Not Resolved]
  - Tooth fracture [Unknown]
  - Hiatus hernia [Unknown]
  - Osteoarthritis [Unknown]
  - Arthritis [Unknown]
  - Gastritis [Unknown]
  - Femur fracture [Recovered/Resolved]
  - Goitre [Unknown]
  - Hypothalamo-pituitary disorder [Unknown]
  - Gastrooesophageal reflux disease [Unknown]
  - Low turnover osteopathy [Not Recovered/Not Resolved]
  - Osteoporosis [Not Recovered/Not Resolved]
  - Adverse event [Unknown]
  - Osteoarthritis [Unknown]
  - Sinusitis [Unknown]
  - Diaphragmatic disorder [Unknown]
  - Insomnia [Unknown]
  - Urine ketone body present [Unknown]

NARRATIVE: CASE EVENT DATE: 2000
